FAERS Safety Report 4366242-9 (Version None)
Quarter: 2004Q2

REPORT INFORMATION
  Report Type: 
  Country: None (occurrence: None)
  Receive Date: 20040526
  Receipt Date: 20040526
  Transmission Date: 20050107
  Serious: Yes (Other)
  Sender: FDA-Public Use
  Company Number: None

PATIENT
  Age: 56 Year
  Sex: Male
  Weight: 97.977 kg

DRUGS (10)
  1. ZYVOX [Suspect]
     Indication: IMPLANT SITE INFECTION
     Dosage: 600 MG Q12 H INTRAVENOUS
     Route: 042
     Dates: start: 20041204, end: 20040105
  2. COMPAZINE [Concomitant]
  3. WARFARIN SODIUM [Concomitant]
  4. HYDROCODONE/ACETAMINOPHEN [Concomitant]
  5. FLURAZEPAM [Concomitant]
  6. ZOCOR [Concomitant]
  7. NEXIUM [Concomitant]
  8. IRON [Concomitant]
  9. BIAXIN [Concomitant]
  10. ETHAMBUTOL HCL [Concomitant]

REACTIONS (2)
  - ANAEMIA [None]
  - ASTHENIA [None]
